FAERS Safety Report 22865658 (Version 3)
Quarter: 2024Q3

REPORT INFORMATION
  Report Type: Spontaneous
  Country: US (occurrence: US)
  Receive Date: 20230825
  Receipt Date: 20240916
  Transmission Date: 20241017
  Serious: Yes (Hospitalization, Other)
  Sender: BRISTOL MYERS SQUIBB
  Company Number: US-BRISTOL-MYERS SQUIBB COMPANY-2023-118893

PATIENT
  Age: 82 Year
  Sex: Male

DRUGS (4)
  1. TRIAMCINOLONE ACETONIDE [Interacting]
     Active Substance: TRIAMCINOLONE ACETONIDE
     Indication: Cystoid macular oedema
     Dosage: 3 DOSES OF SUBTENON TRIAMCINOLONE IN BOTH EYES OVER THE COURSE OF 8 MONTHS
     Route: 031
  2. AMIODARONE [Interacting]
     Active Substance: AMIODARONE
     Indication: Product used for unknown indication
  3. DARUNAVIR [Interacting]
     Active Substance: DARUNAVIR
     Indication: HIV infection
  4. RITONAVIR [Interacting]
     Active Substance: RITONAVIR
     Indication: HIV infection

REACTIONS (4)
  - Pseudo Cushing^s syndrome [Recovering/Resolving]
  - Off label use [Unknown]
  - Adrenal insufficiency [Recovering/Resolving]
  - Drug interaction [Recovering/Resolving]
